FAERS Safety Report 20910127 (Version 1)
Quarter: 2022Q2

REPORT INFORMATION
  Report Type: Spontaneous
  Country: US (occurrence: None)
  Receive Date: 20220602
  Receipt Date: 20220602
  Transmission Date: 20220721
  Serious: Yes (Other)
  Sender: FDA-Public Use
  Company Number: None

PATIENT
  Age: 41 Year
  Weight: 65.25 kg

DRUGS (1)
  1. PAXLOVID [Suspect]
     Active Substance: NIRMATRELVIR\RITONAVIR
     Indication: COVID-19
     Dates: start: 20220501, end: 20220505

REACTIONS (4)
  - COVID-19 [None]
  - Rebound effect [None]
  - Condition aggravated [None]
  - COVID-19 pneumonia [None]

NARRATIVE: CASE EVENT DATE: 20220514
